FAERS Safety Report 7624739-X (Version None)
Quarter: 2011Q3

REPORT INFORMATION
  Report Type: 
  Country: None (occurrence: None)
  Receive Date: 20110720
  Receipt Date: 20110713
  Transmission Date: 20111222
  Serious: Yes (Other)
  Sender: FDA-Public Use
  Company Number: ES-B.I. PHARMACEUTICALS,INC./RIDGEFIELD-2011-ES-00167ES

PATIENT
  Sex: Female

DRUGS (5)
  1. LOVIBON [Concomitant]
     Dosage: 10 MG
     Route: 048
  2. DILTIAZEM [Concomitant]
     Dosage: 240 MG
     Route: 048
  3. PRADAXA [Suspect]
     Indication: ATRIAL FIBRILLATION
     Dosage: 110 MG
     Route: 048
     Dates: start: 20110620
  4. ENALAPRIL MALEATE [Concomitant]
     Dosage: 10 MG
     Route: 048
  5. FUROSEMIDA [Concomitant]
     Dosage: 1 TA/DAY
     Route: 048

REACTIONS (3)
  - OEDEMA PERIPHERAL [None]
  - PRURITUS [None]
  - ERYTHEMA [None]
